FAERS Safety Report 9842854 (Version 1)
Quarter: 2013Q4

REPORT INFORMATION
  Report Type: Spontaneous
  Country: US (occurrence: None)
  Receive Date: 20131223
  Receipt Date: 20131223
  Transmission Date: 20140711
  Serious: No
  Sender: FDA-Public Use
  Company Number: 220378LEO

PATIENT
  Age: 50 Year
  Sex: 0

DRUGS (1)
  1. PICATO (0.015%) [Suspect]
     Indication: ACTINIC KERATOSIS
     Dosage: 1 IN 1 D
     Dates: start: 20130129, end: 20130131

REACTIONS (4)
  - Application site swelling [None]
  - Application site dryness [None]
  - Application site erythema [None]
  - Drug administration error [None]
